FAERS Safety Report 13363375 (Version 8)
Quarter: 2018Q2

REPORT INFORMATION
  Report Type: Spontaneous
  Country: US (occurrence: US)
  Receive Date: 20170323
  Receipt Date: 20180430
  Transmission Date: 20180711
  Serious: Yes (Congenital Anomaly, Other)
  Sender: FDA-Public Use
  Company Number: PHEH2017US008466

PATIENT
  Sex: Male

DRUGS (1)
  1. ZOFRAN [Suspect]
     Active Substance: ONDANSETRON HYDROCHLORIDE
     Indication: FOETAL EXPOSURE DURING PREGNANCY
     Dosage: MOTHER DOSE: 4 MG, UNK
     Route: 064

REACTIONS (29)
  - Cardiac ventricular disorder [Unknown]
  - Atelectasis neonatal [Unknown]
  - Aortic aneurysm [Unknown]
  - Cardiac murmur [Unknown]
  - Dermatitis contact [Unknown]
  - Bicuspid aortic valve [Unknown]
  - Cardiac failure congestive [Unknown]
  - Attention deficit/hyperactivity disorder [Unknown]
  - Injury [Unknown]
  - Pain in extremity [Unknown]
  - Neonatal respiratory distress [Unknown]
  - Tibia fracture [Unknown]
  - Patent ductus arteriosus [Unknown]
  - Pulmonary valve incompetence [Unknown]
  - Clavicle fracture [Unknown]
  - Palpitations [Unknown]
  - Atrial septal defect [Unknown]
  - Transposition of the great vessels [Unknown]
  - Sepsis neonatal [Unknown]
  - Neonatal hyponatraemia [Unknown]
  - Foetal exposure during pregnancy [Unknown]
  - Aortic valve incompetence [Unknown]
  - Right ventricular dilatation [Unknown]
  - Tricuspid valve incompetence [Unknown]
  - Pulmonary artery stenosis congenital [Unknown]
  - Pulmonary oedema neonatal [Unknown]
  - Lymphadenitis [Unknown]
  - Pyrexia [Unknown]
  - Pleural effusion [Unknown]
